FAERS Safety Report 26162564 (Version 1)
Quarter: 2025Q4

REPORT INFORMATION
  Report Type: Spontaneous
  Country: US (occurrence: None)
  Receive Date: 20251213
  Receipt Date: 20251213
  Transmission Date: 20260117
  Serious: Yes (Life-Threatening)
  Sender: FDA-CTU
  Company Number: None

PATIENT
  Age: 25 Year
  Sex: Female
  Weight: 54.43 kg

DRUGS (1)
  1. KYLEENA [Suspect]
     Active Substance: LEVONORGESTREL

REACTIONS (5)
  - Depression [None]
  - Anxiety [None]
  - Impaired work ability [None]
  - Suicidal ideation [None]
  - Hormone level abnormal [None]

NARRATIVE: CASE EVENT DATE: 20251210
